FAERS Safety Report 8065378-9 (Version None)
Quarter: 2012Q1

REPORT INFORMATION
  Report Type: 
  Country: None (occurrence: None)
  Receive Date: 20120124
  Receipt Date: 20120120
  Transmission Date: 20120608
  Serious: Yes (Death, Hospitalization)
  Sender: FDA-Public Use
  Company Number: JP-BAYER-2012-006691

PATIENT
  Age: 44 Year
  Sex: Male

DRUGS (3)
  1. NEXAVAR [Suspect]
     Indication: RENAL CELL CARCINOMA
     Dosage: 400 MG, QD
     Route: 048
     Dates: start: 20111121, end: 20120119
  2. INSULIN [Concomitant]
     Dosage: UNK
  3. GLUCAGON [Concomitant]
     Dosage: UNK

REACTIONS (2)
  - HEPATORENAL SYNDROME [None]
  - RENAL CELL CARCINOMA [None]
